FAERS Safety Report 4757227-9 (Version None)
Quarter: 2005Q3

REPORT INFORMATION
  Report Type: 
  Country: None (occurrence: None)
  Receive Date: 20050829
  Receipt Date: 20050816
  Transmission Date: 20060218
  Serious: Yes (Hospitalization, Other)
  Sender: FDA-Public Use
  Company Number: TPA2005A00917

PATIENT
  Age: 56 Year
  Sex: Female
  Weight: 95.2554 kg

DRUGS (10)
  1. ACTOS [Suspect]
     Indication: DIABETES MELLITUS NON-INSULIN-DEPENDENT
     Dosage: 30 MG, 1 IN 1 D, PER ORAL
     Route: 048
     Dates: start: 20050401, end: 20050802
  2. BYETTA [Suspect]
     Indication: DIABETES MELLITUS
     Dosage: 5 MCG, 3 IN D, SUBCUTANEOUS
     Route: 058
     Dates: start: 20050713
  3. CALCIUM CHANNEL BLOCKER (CALCIUM CHANNEL BLOCKERS) [Concomitant]
  4. LISINOPRIL [Concomitant]
  5. ZYTREC (CETIRIZINE HYDROCHLORIDE) [Concomitant]
  6. MACRODANTIN [Concomitant]
  7. DARVOCET [Concomitant]
  8. CARTIA XT [Concomitant]
  9. VITAMIN B (VITAMN B) [Concomitant]
  10. LIPITOR [Concomitant]

REACTIONS (4)
  - CARDIAC FAILURE [None]
  - CEREBROVASCULAR ACCIDENT [None]
  - MYOCARDIAL INFARCTION [None]
  - THYROID NEOPLASM [None]
